FAERS Safety Report 10404177 (Version 1)
Quarter: 2014Q1

REPORT INFORMATION
  Report Type: Spontaneous
  Country: US (occurrence: None)
  Receive Date: 20131226
  Receipt Date: 20131226
  Transmission Date: 20141002
  Serious: No
  Sender: FDA-Public Use
  Company Number: PHEH2012US023889

PATIENT
  Age: 29 Year
  Sex: Female

DRUGS (1)
  1. GILENYA (FINGOLIMOD) CAPSULE, 0.5MG [Suspect]
     Indication: MULTIPLE SCLEROSIS
     Route: 048
     Dates: start: 201211

REACTIONS (4)
  - Vaginal haemorrhage [None]
  - Menorrhagia [None]
  - Fatigue [None]
  - Dyspnoea [None]
